FAERS Safety Report 9512790 (Version 2)
Quarter: 2013Q3

REPORT INFORMATION
  Report Type: Spontaneous
  Country: FR (occurrence: FR)
  Receive Date: 20130910
  Receipt Date: 20130910
  Transmission Date: 20140515
  Serious: Yes (Hospitalization)
  Sender: FDA-Public Use
  Company Number: FR-B.I. PHARMACEUTICALS,INC./RIDGEFIELD-2013-FF-02239FF

PATIENT
  Age: 49 Year
  Sex: Male

DRUGS (2)
  1. PRADAXA [Suspect]
     Indication: ATRIAL FIBRILLATION
     Dosage: 110 MG
     Route: 048
     Dates: start: 20130521, end: 201308
  2. BISOPROLOL [Concomitant]
     Indication: CARDIOVERSION

REACTIONS (2)
  - Hypotension [Recovered/Resolved]
  - Angioedema [Recovered/Resolved]
